FAERS Safety Report 16879507 (Version 2)
Quarter: 2019Q4

REPORT INFORMATION
  Report Type: Report from Study
  Country: DE (occurrence: DE)
  Receive Date: 20191003
  Receipt Date: 20191106
  Transmission Date: 20200122
  Serious: Yes (Other)
  Sender: FDA-Public Use
  Company Number: PHHY2019DE227337

PATIENT
  Age: 34 Year
  Sex: Male

DRUGS (4)
  1. COSENTYX [Suspect]
     Active Substance: SECUKINUMAB
     Dosage: 300 MG, UNK
     Route: 065
     Dates: start: 20161107, end: 20161205
  2. COSENTYX [Suspect]
     Active Substance: SECUKINUMAB
     Dosage: UNK
     Route: 065
     Dates: start: 20190406, end: 20190812
  3. COSENTYX [Suspect]
     Active Substance: SECUKINUMAB
     Indication: PSORIASIS
     Dosage: 300 MG, UNK
     Route: 065
     Dates: start: 20160711
  4. COSENTYX [Suspect]
     Active Substance: SECUKINUMAB
     Dosage: 300 MG, UNK
     Route: 065
     Dates: start: 20161206, end: 20190405

REACTIONS (2)
  - Respiratory tract infection [Recovered/Resolved]
  - Sinusitis [Recovered/Resolved]

NARRATIVE: CASE EVENT DATE: 20190315
